FAERS Safety Report 23213937 (Version 1)
Quarter: 2023Q4

REPORT INFORMATION
  Report Type: Report from Study
  Country: US (occurrence: US)
  Receive Date: 20231121
  Receipt Date: 20231121
  Transmission Date: 20240110
  Serious: Yes (Hospitalization, Other)
  Sender: FDA-Public Use
  Company Number: US-Eisai-EC-2023-151962

PATIENT
  Age: 64 Year
  Sex: Female

DRUGS (3)
  1. LENVIMA [Suspect]
     Active Substance: LENVATINIB
     Indication: Endometrial cancer
     Route: 048
     Dates: start: 20231011
  2. LENVIMA [Suspect]
     Active Substance: LENVATINIB
     Route: 048
     Dates: start: 20231025, end: 202311
  3. KEYTRUDA [Concomitant]
     Active Substance: PEMBROLIZUMAB
     Indication: Endometrial cancer
     Dosage: DOSE AND FREQUENCY UNKNOWN

REACTIONS (2)
  - Cerebrovascular accident [Unknown]
  - Cystitis [Unknown]

NARRATIVE: CASE EVENT DATE: 20231020
